FAERS Safety Report 7391687-2 (Version None)
Quarter: 2011Q2

REPORT INFORMATION
  Report Type: 
  Country: None (occurrence: None)
  Receive Date: 20110404
  Receipt Date: 20101018
  Transmission Date: 20111010
  Serious: Yes (Hospitalization, Other)
  Sender: FDA-Public Use
  Company Number: US-BAYER-201017765NA

PATIENT
  Sex: Female
  Weight: 92.063 kg

DRUGS (11)
  1. OXYCODONE HCL AND ACETAMINOPHEN [Concomitant]
     Dosage: 7.5 MG, TID
     Route: 048
  2. CYCLOBENZAPRINE [Concomitant]
     Dosage: 10 MG, TID
  3. FERRO-SEQUELS [Concomitant]
     Dosage: UNK UNK, QD
     Route: 048
  4. LORAZEPAM [Concomitant]
     Dosage: 0.5 MG, Q4HR
     Route: 048
  5. NAPROXEN [Concomitant]
     Dosage: 500 MG, BID
     Route: 048
  6. CARISOPRODOL WITH ASPIRIN [Concomitant]
     Dosage: UNK UNK, TID
     Route: 048
  7. TOPAMAX [Concomitant]
  8. YASMIN [Suspect]
     Indication: ACNE
     Route: 048
     Dates: start: 20070101, end: 20080301
  9. MINOCYCLINE [Concomitant]
  10. OXYCODONE HCL AND ACETAMINOPHEN [Concomitant]
     Dosage: 325 MG, TID
     Route: 048
  11. ZOLPIDEM [Concomitant]
     Dosage: 10 MG, QD
     Route: 048

REACTIONS (13)
  - PAIN IN EXTREMITY [None]
  - BACK PAIN [None]
  - RESPIRATORY ARREST [None]
  - PULMONARY EMBOLISM [None]
  - CEREBROVASCULAR ACCIDENT [None]
  - NECK PAIN [None]
  - POST-TRAUMATIC STRESS DISORDER [None]
  - CARDIAC ANEURYSM [None]
  - DEEP VEIN THROMBOSIS [None]
  - HEADACHE [None]
  - TRANSIENT ISCHAEMIC ATTACK [None]
  - AMNESIA [None]
  - MUSCULOSKELETAL CHEST PAIN [None]
